FAERS Safety Report 9296826 (Version 1)
Quarter: 2013Q2

REPORT INFORMATION
  Report Type: Spontaneous
  Country: US (occurrence: US)
  Receive Date: 20130517
  Receipt Date: 20130517
  Transmission Date: 20140414
  Serious: Yes (Other)
  Sender: FDA-Public Use
  Company Number: PHHY2013US048752

PATIENT
  Age: 67 Year
  Sex: Male

DRUGS (1)
  1. ACETYLSALICYLIC ACID [Suspect]
     Indication: HYPERTENSION
     Route: 048

REACTIONS (2)
  - Limb injury [Unknown]
  - Contusion [Unknown]
